FAERS Safety Report 21664639 (Version 1)
Quarter: 2022Q4

REPORT INFORMATION
  Report Type: Spontaneous
  Country: US (occurrence: None)
  Receive Date: 20221129
  Receipt Date: 20221129
  Transmission Date: 20230112
  Serious: Yes (Life-Threatening, Hospitalization, Other)
  Sender: FDA-Public Use
  Company Number: None

PATIENT
  Age: 38 Year
  Sex: Female
  Weight: 55.79 kg

DRUGS (2)
  1. DOXYCYCLINE HYCLATE [Suspect]
     Active Substance: DOXYCYCLINE HYCLATE
  2. LEVOFLOXACIN [Suspect]
     Active Substance: LEVOFLOXACIN

REACTIONS (15)
  - Vomiting [None]
  - Loss of consciousness [None]
  - Syncope [None]
  - General physical health deterioration [None]
  - Chest pain [None]
  - Hypotension [None]
  - Confusional state [None]
  - Memory impairment [None]
  - Arthralgia [None]
  - Myalgia [None]
  - Cardiovascular disorder [None]
  - Fall [None]
  - Anxiety [None]
  - Drug ineffective [None]
  - Lymphoma [None]

NARRATIVE: CASE EVENT DATE: 20190529
